FAERS Safety Report 24206322 (Version 2)
Quarter: 2024Q3

REPORT INFORMATION
  Report Type: Spontaneous
  Country: NL (occurrence: NL)
  Receive Date: 20240813
  Receipt Date: 20240829
  Transmission Date: 20241016
  Serious: Yes (Other)
  Sender: MYLAN
  Company Number: NL-TAKEDA-2024TUS076231

PATIENT
  Age: 49 Year
  Sex: Female

DRUGS (1)
  1. METHYLPHENIDATE [Suspect]
     Active Substance: METHYLPHENIDATE
     Indication: Attention deficit hyperactivity disorder
     Dosage: UNK
     Route: 065

REACTIONS (8)
  - Arteriospasm coronary [Unknown]
  - Cardiac arrest [Unknown]
  - Coronary artery occlusion [Unknown]
  - Asthma [Unknown]
  - Proctalgia [Unknown]
  - Blister [Unknown]
  - Abdominal pain upper [Unknown]
  - Product use issue [Unknown]
